FAERS Safety Report 7372976-4 (Version None)
Quarter: 2011Q1

REPORT INFORMATION
  Report Type: 
  Country: None (occurrence: None)
  Receive Date: 20110311
  Receipt Date: 20110307
  Transmission Date: 20110831
  Serious: Yes (Other)
  Sender: FDA-Public Use
  Company Number: 2011SP010458

PATIENT
  Age: 27 Year
  Sex: Female
  Weight: 136.0791 kg

DRUGS (5)
  1. TOPIRAMATE [Concomitant]
  2. IMPLANON [Suspect]
     Indication: CONTRACEPTION
     Dates: start: 20110303
  3. BUPROPION HYDROCHLORIDE [Concomitant]
  4. RANITIDINE [Concomitant]
  5. FLUOXETINE [Concomitant]

REACTIONS (1)
  - NEURALGIA [None]
